FAERS Safety Report 21059804 (Version 1)
Quarter: 2022Q3

REPORT INFORMATION
  Report Type: Spontaneous
  Country: US (occurrence: US)
  Receive Date: 20220708
  Receipt Date: 20220708
  Transmission Date: 20221027
  Serious: No
  Sender: FDA-Public Use
  Company Number: US-SA-SAC20220629002419

PATIENT
  Sex: Female

DRUGS (10)
  1. AUBAGIO [Suspect]
     Active Substance: TERIFLUNOMIDE
     Indication: Iron deficiency anaemia
     Dosage: 14 MG, QD
     Route: 048
     Dates: start: 20150518
  2. VALSARTAN AND HYDROCHLOROTHIAZIDE [Concomitant]
     Active Substance: HYDROCHLOROTHIAZIDE\VALSARTAN
     Dosage: 100MG
  3. FLUTICASONE [Concomitant]
     Active Substance: FLUTICASONE
     Dosage: 0.05 %
  4. AZITHROMYCIN [Concomitant]
     Active Substance: AZITHROMYCIN
  5. LUMIGAN [Concomitant]
     Active Substance: BIMATOPROST
  6. HYDROCODONE [Concomitant]
     Active Substance: HYDROCODONE
  7. HYDROCODONE [Concomitant]
     Active Substance: HYDROCODONE
     Dosage: 2.5-325M
  8. AMLODIPINE BESYLATE [Concomitant]
     Active Substance: AMLODIPINE BESYLATE
  9. LOSARTAN POTASSIUM [Concomitant]
     Active Substance: LOSARTAN POTASSIUM
  10. TAMSULOSIN HYDROCHLORIDE [Concomitant]
     Active Substance: TAMSULOSIN HYDROCHLORIDE

REACTIONS (1)
  - Product dose omission issue [Unknown]
